FAERS Safety Report 10335934 (Version 2)
Quarter: 2014Q3

REPORT INFORMATION
  Report Type: Spontaneous
  Country: US (occurrence: US)
  Receive Date: 20140723
  Receipt Date: 20140912
  Transmission Date: 20150326
  Serious: Yes (Other)
  Sender: FDA-Public Use
  Company Number: US-TEVA-495555USA

PATIENT
  Sex: Female

DRUGS (6)
  1. DIAZEPAM. [Concomitant]
     Active Substance: DIAZEPAM
  2. AMANTADINE [Concomitant]
     Active Substance: AMANTADINE
  3. RIZATRIPTAN [Concomitant]
     Active Substance: RIZATRIPTAN
  4. COPAXONE [Suspect]
     Active Substance: GLATIRAMER ACETATE
     Indication: MULTIPLE SCLEROSIS
     Dosage: 20 MILLIGRAM DAILY;
     Route: 058
     Dates: start: 1999
  5. ALPRAZOLAM. [Concomitant]
     Active Substance: ALPRAZOLAM
  6. ARMOUR THYROID [Concomitant]
     Active Substance: THYROID, PORCINE\THYROID, UNSPECIFIED

REACTIONS (8)
  - Feeling hot [Unknown]
  - Vasodilatation [Unknown]
  - Choking sensation [Unknown]
  - Adverse reaction [Not Recovered/Not Resolved]
  - Erythema [Unknown]
  - Intentional product misuse [Unknown]
  - Hypopnoea [Unknown]
  - Fear [Unknown]

NARRATIVE: CASE EVENT DATE: 2013
